FAERS Safety Report 19828069 (Version 3)
Quarter: 2021Q4

REPORT INFORMATION
  Report Type: Spontaneous
  Country: PL (occurrence: PL)
  Receive Date: 20210914
  Receipt Date: 20211028
  Transmission Date: 20220303
  Serious: Yes (Other)
  Sender: FDA-Public Use
  Company Number: PL-GEDEON RICHTER PLC.-2021_GR_006714

PATIENT
  Age: 52 Year
  Sex: Female

DRUGS (3)
  1. ATORVASTATIN CALCIUM [Interacting]
     Active Substance: ATORVASTATIN CALCIUM
     Dosage: UNK
  2. TAMOXIFEN [Interacting]
     Active Substance: TAMOXIFEN
     Dosage: UNK
  3. CLARITHROMYCIN [Interacting]
     Active Substance: CLARITHROMYCIN
     Dosage: UNK

REACTIONS (2)
  - Deafness [Recovered/Resolved]
  - Drug interaction [Recovered/Resolved]
